FAERS Safety Report 15472634 (Version 1)
Quarter: 2018Q4

REPORT INFORMATION
  Report Type: Spontaneous
  Country: US (occurrence: US)
  Receive Date: 20181008
  Receipt Date: 20181008
  Transmission Date: 20190205
  Serious: No
  Sender: FDA-Public Use
  Company Number: US-GLENMARK PHARMACEUTICALS-2018GMK037091

PATIENT

DRUGS (1)
  1. MUPIROCIN. [Suspect]
     Active Substance: MUPIROCIN
     Indication: THERMAL BURN
     Dosage: UNK, BID
     Route: 061
     Dates: start: 20180813

REACTIONS (3)
  - Product use in unapproved indication [Unknown]
  - Erythema [Unknown]
  - Skin erosion [Unknown]

NARRATIVE: CASE EVENT DATE: 20180813
